FAERS Safety Report 9809584 (Version 3)
Quarter: 2014Q4

REPORT INFORMATION
  Report Type: Spontaneous
  Country: US (occurrence: US)
  Receive Date: 20140110
  Receipt Date: 20141112
  Transmission Date: 20150529
  Serious: Yes (Other)
  Sender: FDA-Public Use
  Company Number: US-SANOFI-AVENTIS-2012SA054452

PATIENT
  Sex: Female

DRUGS (5)
  1. WARFARIN [Concomitant]
     Active Substance: WARFARIN
     Dates: start: 20110206, end: 20110801
  2. PLAVIX [Suspect]
     Active Substance: CLOPIDOGREL BISULFATE
     Indication: CORONARY ARTERIAL STENT INSERTION
     Route: 065
     Dates: start: 20110206, end: 20120401
  3. PLAVIX [Suspect]
     Active Substance: CLOPIDOGREL BISULFATE
     Indication: MYOCARDIAL INFARCTION
     Route: 065
     Dates: start: 20110206, end: 20120401
  4. ASPIRIN. [Suspect]
     Active Substance: ASPIRIN
     Route: 065
     Dates: start: 2011
  5. PLAVIX [Suspect]
     Active Substance: CLOPIDOGREL BISULFATE
     Indication: ACUTE CORONARY SYNDROME
     Route: 065
     Dates: start: 20110206, end: 20120401

REACTIONS (2)
  - Disability [Unknown]
  - Gastrointestinal haemorrhage [Not Recovered/Not Resolved]

NARRATIVE: CASE EVENT DATE: 20110824
